FAERS Safety Report 5441146-9 (Version None)
Quarter: 2007Q3

REPORT INFORMATION
  Report Type: 
  Country: None (occurrence: None)
  Receive Date: 20070831
  Receipt Date: 20070821
  Transmission Date: 20080115
  Serious: Yes (Hospitalization)
  Sender: FDA-Public Use
  Company Number: PFIZER INC-2007068772

PATIENT
  Age: 46 Year
  Sex: Male
  Weight: 71.7 kg

DRUGS (1)
  1. SUTENT [Suspect]
     Indication: GLIOBLASTOMA MULTIFORME
     Route: 048

REACTIONS (9)
  - ABDOMINAL PAIN [None]
  - GLIOBLASTOMA MULTIFORME [None]
  - HYPOTENSION [None]
  - HYPOXIA [None]
  - INFECTION [None]
  - KLEBSIELLA INFECTION [None]
  - MALIGNANT NEOPLASM PROGRESSION [None]
  - PNEUMONIA ASPIRATION [None]
  - URINARY TRACT INFECTION [None]
